FAERS Safety Report 7045817-2 (Version None)
Quarter: 2010Q4

REPORT INFORMATION
  Report Type: 
  Country: None (occurrence: None)
  Receive Date: 20101014
  Receipt Date: 20101004
  Transmission Date: 20110411
  Serious: Yes (Death, Other)
  Sender: FDA-Public Use
  Company Number: US-BAYER-201042027GPV

PATIENT

DRUGS (3)
  1. NAPROXEN SODIUM [Suspect]
     Indication: DEMENTIA ALZHEIMER'S TYPE
  2. CELECOXIB [Suspect]
     Indication: DEMENTIA ALZHEIMER'S TYPE
  3. ASPIRIN [Concomitant]

REACTIONS (3)
  - CARDIOVASCULAR DISORDER [None]
  - CEREBROVASCULAR ACCIDENT [None]
  - MYOCARDIAL INFARCTION [None]
